FAERS Safety Report 21019928 (Version 1)
Quarter: 2022Q2

REPORT INFORMATION
  Report Type: Spontaneous
  Country: IT (occurrence: IT)
  Receive Date: 20220628
  Receipt Date: 20220628
  Transmission Date: 20220721
  Serious: Yes (Death, Life-Threatening, Hospitalization, Other)
  Sender: FDA-Public Use
  Company Number: IT-PFIZER INC-PV202200009352

PATIENT
  Age: 80 Year

DRUGS (1)
  1. METHYLPREDNISOLONE [Suspect]
     Active Substance: METHYLPREDNISOLONE
     Indication: Myocarditis
     Dosage: 1000 MG, DAILY HIGH DOSE

REACTIONS (3)
  - Drug ineffective [Fatal]
  - Hypotension [Fatal]
  - Oliguria [Fatal]
